FAERS Safety Report 9031003 (Version 2)
Quarter: 2013Q1

REPORT INFORMATION
  Report Type: Spontaneous
  Country: DE (occurrence: DE)
  Receive Date: 20130123
  Receipt Date: 20130213
  Transmission Date: 20140127
  Serious: Yes (Hospitalization, Other)
  Sender: FDA-Public Use
  Company Number: GXKR2013DE000630

PATIENT
  Sex: Male

DRUGS (3)
  1. FLUOXETIN [Suspect]
     Indication: DEPRESSION
     Dosage: 10 MG, QD, IRREGULAR INTAKE
     Route: 048
     Dates: start: 201209, end: 201212
  2. FLUOXETIN [Interacting]
     Dosage: 20 MG, QD
     Route: 048
     Dates: start: 201301
  3. ALCOHOL [Interacting]

REACTIONS (9)
  - Epilepsy [Unknown]
  - Amnesia [Unknown]
  - Contusion [Unknown]
  - Laceration [Unknown]
  - Tongue biting [Unknown]
  - Depression [Unknown]
  - Drug ineffective [Unknown]
  - Inappropriate schedule of drug administration [Unknown]
  - Alcohol interaction [None]
